FAERS Safety Report 6401791-0 (Version None)
Quarter: 2009Q4

REPORT INFORMATION
  Report Type: 
  Country: None (occurrence: None)
  Receive Date: 20091015
  Receipt Date: 20091012
  Transmission Date: 20100525
  Serious: Yes (Life-Threatening)
  Sender: FDA-Public Use
  Company Number: IT-GILEAD-2009-0024338

PATIENT
  Sex: Female

DRUGS (2)
  1. TRUVADA [Suspect]
     Indication: HIV INFECTION
     Route: 048
     Dates: start: 20090820, end: 20090911
  2. VIRAMUNE [Concomitant]
     Indication: HIV INFECTION
     Route: 048
     Dates: start: 20090820, end: 20090911

REACTIONS (1)
  - THROMBOCYTOPENIA [None]
